FAERS Safety Report 20957315 (Version 2)
Quarter: 2022Q2

REPORT INFORMATION
  Report Type: Spontaneous
  Country: US (occurrence: US)
  Receive Date: 20220614
  Receipt Date: 20220616
  Transmission Date: 20220720
  Serious: Yes (Other)
  Sender: FDA-Public Use
  Company Number: US-IGSA-BIG0019129

PATIENT
  Age: 63 Year
  Sex: Male
  Weight: 81.633 kg

DRUGS (21)
  1. GAMUNEX-C [Suspect]
     Active Substance: HUMAN IMMUNOGLOBULIN G
     Indication: Arthritis reactive
     Dosage: 2 GRAM, Q.4WK.
     Route: 042
     Dates: start: 20220524, end: 20220526
  2. GAMUNEX-C [Suspect]
     Active Substance: HUMAN IMMUNOGLOBULIN G
     Indication: Intentional product use issue
     Dosage: 40 GRAM
     Route: 042
     Dates: start: 20220524
  3. DICLOFENAC [Suspect]
     Active Substance: DICLOFENAC
     Indication: Neuropathy peripheral
     Dosage: 75 MILLIGRAM, BID
     Dates: end: 20220602
  4. SOLU-MEDROL [Concomitant]
     Active Substance: METHYLPREDNISOLONE SODIUM SUCCINATE
     Indication: Premedication
  5. ACTIQ [Concomitant]
     Active Substance: FENTANYL CITRATE
     Dosage: 800 MICROGRAM, TID
  6. DURAGESIC [Concomitant]
     Active Substance: FENTANYL
     Dosage: 375 MICROGRAM
  7. ALLEGRA [Concomitant]
     Active Substance: FEXOFENADINE HYDROCHLORIDE
     Dosage: 180 MILLIGRAM, Q.H.S.
  8. CLEOCIN-T [Concomitant]
  9. DIAZEPAM [Concomitant]
     Active Substance: DIAZEPAM
     Dosage: 10 MILLIGRAM
  10. FIORICET [Concomitant]
     Active Substance: ACETAMINOPHEN\BUTALBITAL\CAFFEINE
     Indication: Migraine
     Dosage: UNK UNK, PRN
  11. GABAPENTIN [Concomitant]
     Active Substance: GABAPENTIN
     Dosage: 300 MILLIGRAM, TID
  12. OXYCODONE [Concomitant]
     Active Substance: OXYCODONE
     Dosage: 10 MILLIGRAM, TID
  13. CYCLOSPORINE [Concomitant]
     Active Substance: CYCLOSPORINE
  14. ONDANSETRON [Concomitant]
     Active Substance: ONDANSETRON
     Dosage: 8 MILLIGRAM, PRN
  15. MYCELEX TROCHE [Concomitant]
     Dosage: 50 MILLIGRAM, PRN
  16. PYRIDOSTIGMINE [Concomitant]
     Active Substance: PYRIDOSTIGMINE
     Indication: Myasthenic syndrome
     Dosage: UNK UNK, TID
  17. PYRIDOSTIGMINE [Concomitant]
     Active Substance: PYRIDOSTIGMINE
     Indication: Dysphagia
  18. PYRIDOSTIGMINE [Concomitant]
     Active Substance: PYRIDOSTIGMINE
     Indication: Diplopia
  19. SPIRIVA [Concomitant]
     Active Substance: TIOTROPIUM BROMIDE MONOHYDRATE
     Dosage: 2.5 MILLIGRAM
  20. MESTINON [Concomitant]
     Active Substance: PYRIDOSTIGMINE BROMIDE
     Indication: Muscle disorder
  21. MEXILETINE [Concomitant]
     Active Substance: MEXILETINE
     Indication: Muscle disorder

REACTIONS (14)
  - Chest discomfort [Not Recovered/Not Resolved]
  - Asthma [Not Recovered/Not Resolved]
  - Paraesthesia [Not Recovered/Not Resolved]
  - Lip swelling [Not Recovered/Not Resolved]
  - Serum sickness [Not Recovered/Not Resolved]
  - Arthritis [Not Recovered/Not Resolved]
  - Musculoskeletal pain [Not Recovered/Not Resolved]
  - Renal pain [Not Recovered/Not Resolved]
  - Headache [Not Recovered/Not Resolved]
  - Glomerulonephritis [Not Recovered/Not Resolved]
  - Insomnia [Not Recovered/Not Resolved]
  - Meningitis aseptic [Not Recovered/Not Resolved]
  - Inflammation [Not Recovered/Not Resolved]
  - Potentiating drug interaction [Not Recovered/Not Resolved]

NARRATIVE: CASE EVENT DATE: 20220524
